FAERS Safety Report 8481069 (Version 7)
Quarter: 2012Q4

REPORT INFORMATION
  Report Type: 
  Country: US (occurrence: US)
  Receive Date: 20120328
  Receipt Date: 20121106
  Transmission Date: 20130627
  Serious: Yes (Hospitalization, Disabling, Other)
  Sender: FDA-Public Use
  Company Number: US-009507513-1203USA03293

PATIENT

DRUGS (11)
  1. FOSAMAX [Suspect]
     Indication: OSTEOPENIA
     Dosage: 70 mg, UNK
     Route: 048
     Dates: start: 2002
  2. FOSAMAX [Suspect]
     Indication: OSTEOPOROSIS
  3. FOSAMAX [Suspect]
     Dosage: UNK
     Dates: start: 20080213, end: 20090717
  4. CALCIUM (UNSPECIFIED) [Concomitant]
     Dosage: 1500 mg, qd
     Route: 048
     Dates: start: 1992
  5. VITAMIN D (UNSPECIFIED) [Concomitant]
     Dosage: UNK UNK, qd
     Route: 048
     Dates: start: 1992
  6. BENADRYL [Concomitant]
  7. EPINEPHRINE [Concomitant]
     Route: 058
  8. PREDNISONE [Concomitant]
  9. ZOLOFT [Concomitant]
  10. NASACORT AQ [Concomitant]
     Dosage: 1-2 sprays ea nostril qd
  11. ZYRTEC [Concomitant]
     Dosage: 10 mg, hs

REACTIONS (42)
  - Femur fracture [Recovered/Resolved]
  - Osteoporosis [Unknown]
  - Stress fracture [Unknown]
  - Low turnover osteopathy [Unknown]
  - Fracture delayed union [Recovered/Resolved]
  - Femur fracture [Unknown]
  - Pyrexia [Unknown]
  - Haemoglobin decreased [Recovered/Resolved]
  - Hypotension [Unknown]
  - Breast disorder [Unknown]
  - Foot fracture [Unknown]
  - Impaired healing [Unknown]
  - Diabetes mellitus [Not Recovered/Not Resolved]
  - Impaired healing [Recovered/Resolved]
  - Hyperlipidaemia [Unknown]
  - Osteoarthritis [Unknown]
  - Dysuria [Unknown]
  - Atrophic vulvovaginitis [Unknown]
  - Bladder spasm [Unknown]
  - Breast mass [Unknown]
  - Mammogram abnormal [Unknown]
  - Cataract [Unknown]
  - Colon polypectomy [Unknown]
  - Sinusitis [Unknown]
  - Foot fracture [Unknown]
  - Fatigue [Unknown]
  - Gallbladder disorder [Unknown]
  - Transient ischaemic attack [Unknown]
  - Fall [Unknown]
  - Contusion [Unknown]
  - Device failure [Recovered/Resolved]
  - Gastrooesophageal reflux disease [Not Recovered/Not Resolved]
  - Arthralgia [Unknown]
  - Arthralgia [Unknown]
  - Laryngospasm [Unknown]
  - Lichen sclerosus [Unknown]
  - Tetany [Unknown]
  - Neuropathy peripheral [Unknown]
  - Bronchial hyperreactivity [Unknown]
  - Hypersensitivity [Unknown]
  - Asthma [Unknown]
  - Intramedullary rod insertion [Recovered/Resolved]
